FAERS Safety Report 9960155 (Version 2)
Quarter: 2014Q1

REPORT INFORMATION
  Report Type: Report from Study
  Country: US (occurrence: US)
  Receive Date: 20140305
  Receipt Date: 20140305
  Transmission Date: 20141002
  Serious: No
  Sender: FDA-Public Use
  Company Number: US-ABBVIE-13P-163-1063702-00

PATIENT
  Age: 59 Year
  Sex: Female

DRUGS (10)
  1. HUMIRA [Suspect]
     Indication: RHEUMATOID ARTHRITIS
     Dosage: INITIAL DOSE
     Dates: start: 20130304
  2. SYMBICORT [Concomitant]
     Indication: ASTHMA
  3. ALBUTEROL W/IPRATROPIUM [Concomitant]
     Indication: ASTHMA
     Dosage: NEBULIZER FORM INHALER
  4. ALBUTEROL W/IPRATROPIUM [Concomitant]
     Dosage: NEBULIZER
  5. FAMOTIDINE [Concomitant]
     Indication: GASTROOESOPHAGEAL REFLUX DISEASE
  6. SULFASALAZINE [Concomitant]
     Indication: RHEUMATOID ARTHRITIS
  7. PLAQUENIL [Concomitant]
     Indication: RHEUMATOID ARTHRITIS
  8. MULTIVITAMIN [Concomitant]
     Indication: SUPPLEMENTATION THERAPY
  9. VITAMIN D [Concomitant]
     Indication: SUPPLEMENTATION THERAPY
  10. FISH OIL [Concomitant]
     Indication: SUPPLEMENTATION THERAPY

REACTIONS (5)
  - Dyspnoea [Not Recovered/Not Resolved]
  - Nasopharyngitis [Recovering/Resolving]
  - Bronchitis [Recovering/Resolving]
  - Lung infection [Not Recovered/Not Resolved]
  - Cough [Not Recovered/Not Resolved]
